FAERS Safety Report 13673189 (Version 1)
Quarter: 2017Q2

REPORT INFORMATION
  Report Type: Spontaneous
  Country: US (occurrence: US)
  Receive Date: 20170621
  Receipt Date: 20170621
  Transmission Date: 20170830
  Serious: Yes (Hospitalization, Other)
  Sender: FDA-Public Use
  Company Number: US-MYLANLABS-2017M1036845

PATIENT

DRUGS (5)
  1. TRETINOIN. [Suspect]
     Active Substance: TRETINOIN
     Dosage: CONSOLIDATION CHEMOTHERAPY
     Route: 065
  2. IDARUBICIN [Suspect]
     Active Substance: IDARUBICIN
     Dosage: CONSOLIDATION CHEMOTHERAPY
     Route: 065
  3. TRETINOIN. [Suspect]
     Active Substance: TRETINOIN
     Indication: ACUTE PROMYELOCYTIC LEUKAEMIA
     Route: 065
  4. IDARUBICIN [Suspect]
     Active Substance: IDARUBICIN
     Indication: ACUTE PROMYELOCYTIC LEUKAEMIA
     Dosage: UNK
     Route: 065
  5. MITOXANTRONE [Suspect]
     Active Substance: MITOXANTRONE HYDROCHLORIDE
     Indication: ACUTE PROMYELOCYTIC LEUKAEMIA
     Dosage: CONSOLIDATION CHEMOTHERAPY
     Route: 065

REACTIONS (2)
  - Skin reaction [Recovered/Resolved]
  - Acute promyelocytic leukaemia differentiation syndrome [Recovered/Resolved]
